FAERS Safety Report 22292282 (Version 2)
Quarter: 2023Q2

REPORT INFORMATION
  Report Type: Spontaneous
  Country: US (occurrence: US)
  Receive Date: 20230508
  Receipt Date: 20230526
  Transmission Date: 20230722
  Serious: Yes (Life-Threatening, Hospitalization, Other)
  Sender: FDA-Public Use
  Company Number: US-LUPIN PHARMACEUTICALS INC.-2023-03451

PATIENT
  Age: 25 Year
  Sex: Female

DRUGS (1)
  1. RANOLAZINE [Suspect]
     Active Substance: RANOLAZINE
     Indication: Product used for unknown indication
     Dosage: UNK
     Route: 048

REACTIONS (9)
  - Intentional overdose [Unknown]
  - Metabolic acidosis [Unknown]
  - Cardiac arrest [Unknown]
  - Circulatory collapse [Unknown]
  - Acute respiratory distress syndrome [Unknown]
  - Somnolence [Unknown]
  - Generalised tonic-clonic seizure [Unknown]
  - Hypokalaemia [Unknown]
  - Cardiac ventricular disorder [Recovered/Resolved]
